FAERS Safety Report 4940977-9 (Version None)
Quarter: 2006Q1

REPORT INFORMATION
  Report Type: 
  Country: None (occurrence: None)
  Receive Date: 20060313
  Receipt Date: 20060209
  Transmission Date: 20060701
  Serious: Yes (Hospitalization)
  Sender: FDA-Public Use
  Company Number: JP-NOVOPROD-251295

PATIENT
  Age: 5 Year
  Sex: Male
  Weight: 9 kg

DRUGS (2)
  1. NORDITROPIN SIMPLEXX [Suspect]
     Indication: GROWTH HORMONE DEFICIENCY
     Dosage: UNK MG, QD
     Route: 058
     Dates: start: 20030808
  2. NORDITROPIN SIMPLEXX [Suspect]
     Dosage: UNK MG, QD
     Dates: start: 20040727

REACTIONS (2)
  - CONDITION AGGRAVATED [None]
  - HAEMANGIOMA-THROMBOCYTOPENIA SYNDROME [None]
